FAERS Safety Report 7436664-8 (Version None)
Quarter: 2011Q2

REPORT INFORMATION
  Report Type: 
  Country: None (occurrence: None)
  Receive Date: 20110426
  Receipt Date: 20110418
  Transmission Date: 20111010
  Serious: Yes (Other)
  Sender: FDA-Public Use
  Company Number: US-JNJFOC-20110312426

PATIENT
  Sex: Male

DRUGS (4)
  1. PREDNISONE [Suspect]
     Indication: PRODUCT USED FOR UNKNOWN INDICATION
     Dosage: 3 DAYS
     Route: 065
  2. PREDNISONE [Suspect]
     Dosage: FOR 3 DAYS
     Route: 065
  3. LEVAQUIN [Suspect]
     Indication: PROPHYLAXIS
     Route: 048
  4. PREDNISONE [Suspect]
     Dosage: FOR 3 DAYS
     Route: 065

REACTIONS (5)
  - TENDON RUPTURE [None]
  - SYNCOPE [None]
  - TENDONITIS [None]
  - LIGAMENT INJURY [None]
  - MYALGIA [None]
